FAERS Safety Report 12313989 (Version 2)
Quarter: 2016Q3

REPORT INFORMATION
  Report Type: Report from Study
  Country: US (occurrence: US)
  Receive Date: 20160428
  Receipt Date: 20160919
  Transmission Date: 20161109
  Serious: Yes (Hospitalization, Disabling, Other)
  Sender: FDA-Public Use
  Company Number: US-ROCHE-1732182

PATIENT
  Age: 72 Year
  Sex: Female

DRUGS (14)
  1. ACTEMRA [Suspect]
     Active Substance: TOCILIZUMAB
     Route: 042
     Dates: start: 201506
  2. LOSARTAN. [Concomitant]
     Active Substance: LOSARTAN
     Indication: BLOOD PRESSURE MEASUREMENT
     Dosage: 25MG IN AM AND 25MG IN PM
     Route: 065
  3. FIORICET [Concomitant]
     Active Substance: ACETAMINOPHEN\BUTALBITAL\CAFFEINE
     Indication: MIGRAINE
     Dosage: AS NEEDED
     Route: 065
  4. ACTEMRA [Suspect]
     Active Substance: TOCILIZUMAB
     Indication: RHEUMATOID ARTHRITIS
     Route: 042
     Dates: start: 20160205, end: 20160215
  5. COREG [Concomitant]
     Active Substance: CARVEDILOL
     Dosage: 1/2 TABLET
     Route: 065
  6. ADVAIR HFA [Concomitant]
     Active Substance: FLUTICASONE PROPIONATE\SALMETEROL XINAFOATE
     Indication: SEASONAL ALLERGY
     Dosage: IN THE MORNING
     Route: 065
  7. ACTEMRA [Suspect]
     Active Substance: TOCILIZUMAB
     Route: 042
     Dates: start: 20160215
  8. PLAVIX [Concomitant]
     Active Substance: CLOPIDOGREL BISULFATE
     Route: 065
  9. LIPITOR [Concomitant]
     Active Substance: ATORVASTATIN CALCIUM
     Route: 065
  10. PANTOPRAZOLE [Concomitant]
     Active Substance: PANTOPRAZOLE SODIUM
     Route: 065
  11. SULFASALAZINE. [Concomitant]
     Active Substance: SULFASALAZINE
     Indication: RHEUMATOID ARTHRITIS
     Dosage: 2 TABS BID
     Route: 048
  12. NITROGLYCERIN. [Concomitant]
     Active Substance: NITROGLYCERIN
     Indication: CHEST PAIN
     Dosage: SL; AS NEEDED
     Route: 065
  13. BONVIVA [Concomitant]
     Active Substance: IBANDRONATE SODIUM
     Route: 065
  14. BABY ASPIRIN [Concomitant]
     Active Substance: ASPIRIN
     Route: 065

REACTIONS (6)
  - Diverticulitis [Recovered/Resolved]
  - Malaise [Unknown]
  - Osteoporosis [Unknown]
  - Cerebrovascular accident [Recovering/Resolving]
  - Cerebrovascular accident [Unknown]
  - Myocardial infarction [Recovered/Resolved with Sequelae]

NARRATIVE: CASE EVENT DATE: 201602
